FAERS Safety Report 19703410 (Version 4)
Quarter: 2021Q4

REPORT INFORMATION
  Report Type: Report from Study
  Country: FR (occurrence: None)
  Receive Date: 20210816
  Receipt Date: 20211218
  Transmission Date: 20220303
  Serious: Yes (Hospitalization)
  Sender: FDA-Public Use
  Company Number: FR-ROCHE-2889416

PATIENT
  Age: 67 Year
  Sex: Male
  Weight: 84 kg

DRUGS (3)
  1. ATEZOLIZUMAB [Suspect]
     Active Substance: ATEZOLIZUMAB
     Indication: Soft tissue sarcoma
     Dosage: LAST DOSE ON 19/JUL/2021
     Route: 041
     Dates: start: 20210705, end: 20210719
  2. COBIMETINIB [Suspect]
     Active Substance: COBIMETINIB
     Indication: Soft tissue sarcoma
     Dosage: LAST DOSE ON 26/JUL/2021
     Route: 048
     Dates: start: 20210705, end: 20210726
  3. APIXABAN [Concomitant]
     Active Substance: APIXABAN
     Indication: Phlebitis
     Route: 048
     Dates: start: 201801

REACTIONS (1)
  - Cardiac failure [Recovered/Resolved with Sequelae]

NARRATIVE: CASE EVENT DATE: 20210730
